FAERS Safety Report 26009855 (Version 1)
Quarter: 2025Q4

REPORT INFORMATION
  Report Type: Spontaneous
  Country: CN (occurrence: CN)
  Receive Date: 20251107
  Receipt Date: 20251107
  Transmission Date: 20260117
  Serious: Yes (Other)
  Sender: ROCHE
  Company Number: CN-BoehringerIngelheim-2025-BI-104147

PATIENT
  Age: 75 Year
  Sex: Female
  Weight: 50.0 kg

DRUGS (1)
  1. ALTEPLASE [Suspect]
     Active Substance: ALTEPLASE
     Indication: Pulmonary embolism
     Route: 042
     Dates: start: 20251020, end: 20251021

REACTIONS (6)
  - Blood fibrinogen decreased [Recovering/Resolving]
  - Gingival bleeding [Recovered/Resolved]
  - Lip haemorrhage [Recovered/Resolved]
  - Prothrombin time abnormal [Recovering/Resolving]
  - Activated partial thromboplastin time abnormal [Recovering/Resolving]
  - Thrombin time abnormal [Recovering/Resolving]

NARRATIVE: CASE EVENT DATE: 20251021
